FAERS Safety Report 9058546 (Version 1)
Quarter: 2013Q1

REPORT INFORMATION
  Report Type: Spontaneous
  Country: US (occurrence: None)
  Receive Date: 20130118
  Receipt Date: 20130118
  Transmission Date: 20140127
  Serious: Yes (Death)
  Sender: FDA-Public Use
  Company Number: AUR-APL-2013-00452

PATIENT
  Age: 47 Year
  Sex: Female

DRUGS (9)
  1. CITALOPRAM (CITALOPRAM) [Suspect]
     Indication: PRODUCT USED FOR UNKNOWN INDICATION
  2. GABAPENTIN (GABAPENTIN) [Suspect]
  3. LISINOPRIL (LISINOPRIL) [Suspect]
  4. DILTIAZEM [Suspect]
     Route: 048
  5. IRON [Suspect]
  6. ACETAMINOPHEN/OXYCODONE [Suspect]
  7. MODAFINIL [Suspect]
  8. TRAZODONE [Suspect]
  9. ETHANOL [Suspect]

REACTIONS (2)
  - Adverse drug reaction [None]
  - Toxicity to various agents [None]
